FAERS Safety Report 19603919 (Version 19)
Quarter: 2022Q1

REPORT INFORMATION
  Report Type: Report from Study
  Country: AU (occurrence: AU)
  Receive Date: 20210723
  Receipt Date: 20220121
  Transmission Date: 20220424
  Serious: Yes (Hospitalization, Other)
  Sender: FDA-Public Use
  Company Number: AU-BIOGEN-2021BI01030117

PATIENT
  Age: 18 Year
  Sex: Female

DRUGS (6)
  1. TYSABRI [Suspect]
     Active Substance: NATALIZUMAB
     Indication: Multiple sclerosis
     Dosage: INFUSED OVER 1 HOUR
     Route: 042
     Dates: start: 20210706, end: 20210901
  2. TYSABRI [Suspect]
     Active Substance: NATALIZUMAB
     Route: 042
     Dates: start: 20210901
  3. TYSABRI [Suspect]
     Active Substance: NATALIZUMAB
     Route: 042
     Dates: start: 20210706
  4. TYSABRI [Suspect]
     Active Substance: NATALIZUMAB
     Route: 042
  5. TYSABRI [Suspect]
     Active Substance: NATALIZUMAB
     Route: 042
  6. TYSABRI [Suspect]
     Active Substance: NATALIZUMAB
     Route: 042
     Dates: start: 2021

REACTIONS (19)
  - Multiple sclerosis [Not Recovered/Not Resolved]
  - Nerve compression [Not Recovered/Not Resolved]
  - Arthritis [Recovered/Resolved]
  - Middle insomnia [Not Recovered/Not Resolved]
  - Feeling hot [Not Recovered/Not Resolved]
  - Neuralgia [Unknown]
  - Prescribed underdose [Not Recovered/Not Resolved]
  - Catheter site bruise [Unknown]
  - Palpitations [Not Recovered/Not Resolved]
  - Illness anxiety disorder [Not Recovered/Not Resolved]
  - Paraesthesia [Recovered/Resolved]
  - Stress [Not Recovered/Not Resolved]
  - Chest discomfort [Unknown]
  - Petechiae [Not Recovered/Not Resolved]
  - Gastrooesophageal reflux disease [Recovered/Resolved]
  - Heart rate increased [Not Recovered/Not Resolved]
  - Oropharyngeal pain [Recovered/Resolved]
  - Pruritus [Not Recovered/Not Resolved]
  - Headache [Recovered/Resolved]

NARRATIVE: CASE EVENT DATE: 20210701
